FAERS Safety Report 5765792-8 (Version None)
Quarter: 2008Q2

REPORT INFORMATION
  Report Type: 
  Country: None (occurrence: None)
  Receive Date: 20080611
  Receipt Date: 20080530
  Transmission Date: 20081010
  Serious: Yes (Hospitalization, Other)
  Sender: FDA-Public Use
  Company Number: DE-ELI_LILLY_AND_COMPANY-DE200805006155

PATIENT
  Sex: Female

DRUGS (4)
  1. EXENATIDE [Suspect]
     Dosage: 5 UG, UNKNOWN
     Route: 065
     Dates: start: 20070314, end: 20070402
  2. EXENATIDE [Suspect]
     Dosage: 10 UG, UNKNOWN
     Route: 065
     Dates: start: 20070403, end: 20080513
  3. METFORMIN HCL [Concomitant]
     Indication: DIABETES MELLITUS
     Dosage: UNK, UNKNOWN
     Route: 065
     Dates: start: 20020801, end: 20080513
  4. RAMIPRIL [Concomitant]
     Indication: HYPERTENSION
     Dosage: UNK, UNKNOWN
     Route: 065
     Dates: start: 20070111

REACTIONS (3)
  - ANAEMIA [None]
  - COLORECTAL CANCER [None]
  - LUNG NEOPLASM MALIGNANT [None]
